FAERS Safety Report 5518606-5 (Version None)
Quarter: 2007Q4

REPORT INFORMATION
  Report Type: 
  Country: None (occurrence: None)
  Receive Date: 20071115
  Receipt Date: 20071105
  Transmission Date: 20080405
  Serious: Yes (Hospitalization, Disabling)
  Sender: FDA-Public Use
  Company Number: DE-BAXTER-2007BH006946

PATIENT
  Age: 35 Year
  Sex: Male
  Weight: 73 kg

DRUGS (12)
  1. DIANEAL [Suspect]
     Indication: PERITONEAL DIALYSIS
     Route: 033
     Dates: start: 20040308, end: 20060625
  2. EXTRANEAL [Suspect]
     Indication: PERITONEAL DIALYSIS
     Route: 033
     Dates: start: 20040308, end: 20060625
  3. METOPROLOL TARTRATE [Concomitant]
     Route: 048
  4. EINSALPHA [Concomitant]
     Route: 048
  5. VALSARTAN [Concomitant]
     Route: 048
  6. FUROSEMIDE [Concomitant]
     Route: 048
  7. AMLODIPINE [Concomitant]
     Route: 048
  8. XIPAMIDE [Concomitant]
     Route: 048
  9. PHOS-EX [Concomitant]
     Route: 048
  10. ARANESP [Concomitant]
     Route: 058
  11. INSULIN GLARGINE [Concomitant]
     Route: 058
  12. HUMALOG [Concomitant]
     Route: 058

REACTIONS (3)
  - BACTERAEMIA [None]
  - PERITONITIS [None]
  - SCLEROSING ENCAPSULATING PERITONITIS [None]
